FAERS Safety Report 6261768-5 (Version None)
Quarter: 2009Q3

REPORT INFORMATION
  Report Type: 
  Country: None (occurrence: None)
  Receive Date: 20090707
  Receipt Date: 20090707
  Transmission Date: 20100115
  Serious: Yes (Life-Threatening, Hospitalization)
  Sender: FDA-Public Use
  Company Number: None

PATIENT
  Age: 31 Year
  Sex: Female
  Weight: 58.9676 kg

DRUGS (1)
  1. CHANTIX [Suspect]
     Indication: SMOKING CESSATION THERAPY
     Dosage: 1.MG BID PO
     Route: 048
     Dates: start: 20090501, end: 20090630

REACTIONS (19)
  - CONVULSION [None]
  - DIZZINESS [None]
  - HAEMATEMESIS [None]
  - HEADACHE [None]
  - INCORRECT DOSE ADMINISTERED [None]
  - LOSS OF CONSCIOUSNESS [None]
  - MUSCULOSKELETAL PAIN [None]
  - MYDRIASIS [None]
  - MYODESOPSIA [None]
  - NIGHTMARE [None]
  - OESOPHAGEAL PERFORATION [None]
  - PHOTOPSIA [None]
  - RESPIRATORY ARREST [None]
  - SELF-MEDICATION [None]
  - SOCIAL AVOIDANT BEHAVIOUR [None]
  - THINKING ABNORMAL [None]
  - VASCULAR RUPTURE [None]
  - VOMITING [None]
  - WRONG DRUG ADMINISTERED [None]
